FAERS Safety Report 5854212-0 (Version None)
Quarter: 2008Q3

REPORT INFORMATION
  Report Type: 
  Country: None (occurrence: None)
  Receive Date: 20080822
  Receipt Date: 20080815
  Transmission Date: 20090109
  Serious: Yes (Hospitalization)
  Sender: FDA-Public Use
  Company Number: PHHY2008DE18333

PATIENT
  Sex: Female

DRUGS (1)
  1. FLUVASTATIN [Suspect]
     Indication: HYPERCHOLESTEROLAEMIA
     Dosage: 80 MG/DAY
     Route: 048

REACTIONS (4)
  - ARTHRALGIA [None]
  - JOINT SURGERY [None]
  - MUSCLE SPASMS [None]
  - MYALGIA [None]
